FAERS Safety Report 9198770 (Version 1)
Quarter: 2013Q1

REPORT INFORMATION
  Report Type: Spontaneous
  Country: US (occurrence: US)
  Receive Date: 20130329
  Receipt Date: 20130329
  Transmission Date: 20140127
  Serious: Yes (Disabling, Other)
  Sender: FDA-Public Use
  Company Number: US-GENZYME-FABR-1003046

PATIENT
  Age: 51 Year
  Sex: Male
  Weight: 65 kg

DRUGS (1)
  1. FABRAZYME [Suspect]
     Indication: FABRY^S DISEASE
     Dosage: 65 MG (1MG/KG), Q2W
     Route: 042
     Dates: start: 200306

REACTIONS (1)
  - Tendon rupture [Not Recovered/Not Resolved]
